FAERS Safety Report 7691435-2 (Version None)
Quarter: 2011Q3

REPORT INFORMATION
  Report Type: 
  Country: None (occurrence: None)
  Receive Date: 20110818
  Receipt Date: 20110805
  Transmission Date: 20111222
  Serious: Yes (Hospitalization, Other)
  Sender: FDA-Public Use
  Company Number: US-JNJFOC-20100806410

PATIENT
  Sex: Female
  Weight: 58.06 kg

DRUGS (13)
  1. LISINOPRIL [Concomitant]
     Indication: HYPERTENSION
     Route: 065
  2. LEVAQUIN [Suspect]
     Indication: INFECTION
     Route: 048
     Dates: start: 20100709, end: 20100715
  3. CLARITIN [Concomitant]
     Route: 055
  4. TRAMADOL HCL [Concomitant]
     Route: 065
  5. ASPIRIN [Concomitant]
     Indication: CEREBROVASCULAR ACCIDENT PROPHYLAXIS
     Route: 055
  6. ZYRTEC [Concomitant]
     Route: 055
  7. AMLODIPINE BESYLATE [Concomitant]
     Indication: HYPERTENSION
     Route: 065
  8. ALBUTEROL SULFATE AUTOHALER [Concomitant]
     Indication: CHRONIC OBSTRUCTIVE PULMONARY DISEASE
     Route: 055
  9. ALBUTEROL SULFATE AUTOHALER [Concomitant]
     Indication: EMPHYSEMA
     Route: 055
  10. LASIX [Concomitant]
     Route: 055
  11. BLOOD PRESSURE MEDICATION NOS [Concomitant]
     Indication: HYPERTENSION
     Route: 065
  12. SYMBICORT [Concomitant]
     Route: 055
  13. METRONIDAZOLE [Concomitant]
     Route: 065

REACTIONS (6)
  - ASTHENIA [None]
  - CHRONIC OBSTRUCTIVE PULMONARY DISEASE [None]
  - CONSTIPATION [None]
  - INSOMNIA [None]
  - INTENTIONAL DRUG MISUSE [None]
  - RESTLESSNESS [None]
